FAERS Safety Report 5710114-1 (Version None)
Quarter: 2008Q2

REPORT INFORMATION
  Report Type: 
  Country: None (occurrence: None)
  Receive Date: 20080418
  Receipt Date: 20071112
  Transmission Date: 20081010
  Serious: No
  Sender: FDA-Public Use
  Company Number: US-ASTRAZENECA-2007UW26233

PATIENT
  Age: 77 Year
  Sex: Female
  Weight: 71.7 kg

DRUGS (4)
  1. TOPROL-XL [Suspect]
     Indication: HYPERTENSION
     Route: 048
     Dates: start: 20070501
  2. ALTACE [Concomitant]
     Route: 048
  3. NEXIUM [Concomitant]
     Route: 048
  4. XANAX [Concomitant]

REACTIONS (2)
  - DYSGEUSIA [None]
  - LIP PAIN [None]
